FAERS Safety Report 21523771 (Version 2)
Quarter: 2022Q4

REPORT INFORMATION
  Report Type: Spontaneous
  Country: AU (occurrence: AU)
  Receive Date: 20221029
  Receipt Date: 20221104
  Transmission Date: 20230113
  Serious: Yes (Other)
  Sender: FDA-Public Use
  Company Number: AU-TEVA-2022-AU-2818837

PATIENT
  Age: 31 Year
  Sex: Female

DRUGS (1)
  1. AJOVY [Suspect]
     Active Substance: FREMANEZUMAB-VFRM
     Indication: Migraine
     Dosage: 150 MG/ML
     Route: 065
     Dates: start: 2022

REACTIONS (5)
  - Loss of consciousness [Recovered/Resolved]
  - Thunderclap headache [Not Recovered/Not Resolved]
  - Vision blurred [Unknown]
  - Hypertension [Recovered/Resolved]
  - Migraine [Unknown]

NARRATIVE: CASE EVENT DATE: 20221001
